FAERS Safety Report 5811498-6 (Version None)
Quarter: 2008Q3

REPORT INFORMATION
  Report Type: 
  Country: None (occurrence: None)
  Receive Date: 20080716
  Receipt Date: 20080306
  Transmission Date: 20090109
  Serious: No
  Sender: FDA-Public Use
  Company Number: US-NOVOPROD-273084

PATIENT
  Age: 63 Year
  Sex: Male
  Weight: 109 kg

DRUGS (3)
  1. NOVOLOG [Suspect]
     Indication: INSULIN-REQUIRING TYPE 2 DIABETES MELLITUS
     Dosage: 35 U BEFORE MEALS
     Route: 058
  2. INSULIN GLARGINE [Suspect]
     Indication: INSULIN-REQUIRING TYPE 2 DIABETES MELLITUS
     Dosage: 135 U, QD
     Route: 058
  3. INSULIN GLARGINE [Suspect]

REACTIONS (1)
  - ACANTHOSIS NIGRICANS [None]
